FAERS Safety Report 7321248-2 (Version None)
Quarter: 2011Q1

REPORT INFORMATION
  Report Type: 
  Country: None (occurrence: None)
  Receive Date: 20110228
  Receipt Date: 20110217
  Transmission Date: 20110831
  Serious: Yes (Other)
  Sender: FDA-Public Use
  Company Number: US-ASTRAZENECA-2011SE09231

PATIENT
  Age: 37 Year
  Sex: Female
  Weight: 77.6 kg

DRUGS (5)
  1. SEROQUEL [Suspect]
     Route: 048
  2. CHANTIX [Suspect]
     Dosage: CUTTING IN HALF
     Route: 048
     Dates: start: 20090501
  3. SEROQUEL [Suspect]
     Indication: BIPOLAR DISORDER
     Route: 048
     Dates: start: 20100101
  4. CHANTIX [Suspect]
     Indication: EX-TOBACCO USER
     Route: 048
     Dates: start: 20080201
  5. CHANTIX [Suspect]
     Dosage: CUTTING IN HALF
     Route: 048
     Dates: start: 20100201, end: 20100303

REACTIONS (11)
  - POST-TRAUMATIC STRESS DISORDER [None]
  - BIPOLAR DISORDER [None]
  - SUICIDAL IDEATION [None]
  - HOMICIDAL IDEATION [None]
  - BLOOD CHOLESTEROL INCREASED [None]
  - FAECALOMA [None]
  - LOW DENSITY LIPOPROTEIN INCREASED [None]
  - SOCIAL PHOBIA [None]
  - WEIGHT INCREASED [None]
  - PARANOIA [None]
  - GLYCOSYLATED HAEMOGLOBIN INCREASED [None]
